FAERS Safety Report 9786618 (Version 4)
Quarter: 2014Q3

REPORT INFORMATION
  Report Type: Spontaneous
  Country: US (occurrence: US)
  Receive Date: 20131227
  Receipt Date: 20140717
  Transmission Date: 20150326
  Serious: Yes (Other)
  Sender: FDA-Public Use
  Company Number: PHHY2013US137968

PATIENT
  Age: 50 Year
  Sex: Female

DRUGS (11)
  1. KLONOPIN [Suspect]
     Active Substance: CLONAZEPAM
     Indication: AGORAPHOBIA
     Dosage: 2 TO 3 MG, DAILY
  2. HEROIN [Suspect]
     Active Substance: DIACETYLMORPHINE
     Dosage: UNK UKN, UNK
  3. BACLOFEN INTRATHECAL [Suspect]
     Active Substance: BACLOFEN
     Dosage: 0.30 UG, DAILY
     Route: 037
  4. DILAUDID [Suspect]
     Active Substance: HYDROMORPHONE HYDROCHLORIDE
     Indication: PAIN
     Dosage: 6 MG, DAILY (WITH A 4MG OF RESERVE)
     Route: 037
  5. VICODIN [Suspect]
     Active Substance: ACETAMINOPHEN\HYDROCODONE BITARTRATE
     Dosage: 325 UKN, UNK
  6. PERCOCET [Suspect]
     Active Substance: ACETAMINOPHEN\OXYCODONE HYDROCHLORIDE
     Dosage: 10 MG, UNK
  7. BACLOFEN INTRATHECAL [Suspect]
     Active Substance: BACLOFEN
     Indication: PAIN
     Dosage: UNK UKN, UNK
     Route: 037
  8. PERCOCET [Suspect]
     Active Substance: ACETAMINOPHEN\OXYCODONE HYDROCHLORIDE
     Dosage: 15 MG, UNK
  9. VANCOMYCIN HYDROCHLORIDE. [Suspect]
     Active Substance: VANCOMYCIN HYDROCHLORIDE
     Dosage: UNK UKN, UNK
  10. DILAUDID [Suspect]
     Active Substance: HYDROMORPHONE HYDROCHLORIDE
     Dosage: 6.736 MG (30.0MG/ML), DAILY
     Route: 037
  11. PERCOCET [Suspect]
     Active Substance: ACETAMINOPHEN\OXYCODONE HYDROCHLORIDE
     Dosage: 5 MG, UNK

REACTIONS (30)
  - Hypoaesthesia [Unknown]
  - Asthenia [Unknown]
  - Cerebrospinal fluid leakage [Unknown]
  - Performance status decreased [Unknown]
  - Unevaluable event [Unknown]
  - Diarrhoea [Unknown]
  - Abdominal distension [Unknown]
  - Condition aggravated [Unknown]
  - Excoriation [Unknown]
  - Pain [Unknown]
  - Wound [Unknown]
  - Intervertebral disc protrusion [Unknown]
  - Back pain [Unknown]
  - Breakthrough pain [Unknown]
  - Road traffic accident [Unknown]
  - Staphylococcal infection [Unknown]
  - Implant site infection [Unknown]
  - Abdominal pain upper [Unknown]
  - Local swelling [Unknown]
  - Implant site swelling [Unknown]
  - No therapeutic response [Unknown]
  - Feeling abnormal [Unknown]
  - Tension [Unknown]
  - Drug abuse [Unknown]
  - Implant site extravasation [Unknown]
  - Neck pain [Unknown]
  - Fall [Unknown]
  - Spinal disorder [Unknown]
  - Dysstasia [Unknown]
  - Weight decreased [Unknown]

NARRATIVE: CASE EVENT DATE: 2010
